FAERS Safety Report 10919204 (Version 1)
Quarter: 2015Q1

REPORT INFORMATION
  Report Type: Spontaneous
  Country: DK (occurrence: DK)
  Receive Date: 20150316
  Receipt Date: 20150316
  Transmission Date: 20150721
  Serious: Yes (Life-Threatening, Hospitalization)
  Sender: FDA-Public Use
  Company Number: DK-B.I. PHARMACEUTICALS,INC./RIDGEFIELD-2015-BI-13133DB

PATIENT
  Age: 77 Year
  Sex: Female

DRUGS (9)
  1. LAMOTRIGIN [Concomitant]
     Active Substance: LAMOTRIGINE
     Indication: MOOD SWINGS
     Route: 065
     Dates: start: 20150106
  2. VITAMIN D3 [Concomitant]
     Active Substance: CHOLECALCIFEROL
     Indication: HYPOVITAMINOSIS
     Route: 065
     Dates: start: 20150105
  3. MOVICOL [Concomitant]
     Active Substance: POLYETHYLENE GLYCOL 3350\POTASSIUM CHLORIDE\SODIUM BICARBONATE\SODIUM CHLORIDE
     Indication: CONSTIPATION
     Route: 065
     Dates: start: 20140717
  4. COMBAR [Concomitant]
     Indication: DEPRESSION
     Route: 065
     Dates: start: 20150108
  5. PRADAXA [Suspect]
     Active Substance: DABIGATRAN ETEXILATE MESYLATE
     Indication: THROMBOSIS PROPHYLAXIS
     Dosage: 220 MG
     Route: 048
     Dates: start: 20141218, end: 20150308
  6. KALEORID [Concomitant]
     Active Substance: POTASSIUM CHLORIDE
     Indication: MINERAL SUPPLEMENTATION
     Route: 065
     Dates: start: 20140221
  7. PANTOPRAZOLE [Concomitant]
     Active Substance: PANTOPRAZOLE SODIUM
     Indication: GASTROOESOPHAGEAL REFLUX DISEASE
     Route: 065
     Dates: start: 20140221
  8. RISPERDAL [Concomitant]
     Active Substance: RISPERIDONE
     Indication: MENTAL DISORDER
     Route: 065
     Dates: start: 20150116
  9. HJERTEMAGNYL [Concomitant]
     Active Substance: ASPIRIN\MAGNESIUM OXIDE
     Indication: ANTICOAGULANT THERAPY
     Route: 065
     Dates: start: 20141218, end: 20150108

REACTIONS (9)
  - Eye movement disorder [Not Recovered/Not Resolved]
  - Haemorrhage intracranial [Not Recovered/Not Resolved]
  - Haematemesis [Not Recovered/Not Resolved]
  - Abdominal pain [Not Recovered/Not Resolved]
  - Muscle spasms [Not Recovered/Not Resolved]
  - Cerebrovascular accident [Not Recovered/Not Resolved]
  - Tongue biting [Not Recovered/Not Resolved]
  - Somnolence [Not Recovered/Not Resolved]
  - Depressed level of consciousness [Not Recovered/Not Resolved]

NARRATIVE: CASE EVENT DATE: 20150308
